FAERS Safety Report 8862853 (Version 1)
Quarter: 2012Q4

REPORT INFORMATION
  Report Type: 
  Country: FR (occurrence: FR)
  Receive Date: 20121026
  Receipt Date: 20121026
  Transmission Date: 20130627
  Serious: Yes (Death, Hospitalization)
  Sender: FDA-Public Use
  Company Number: FR-GLAXOSMITHKLINE-B0838604A

PATIENT
  Sex: Male

DRUGS (1)
  1. ARIXTRA [Suspect]
     Indication: THROMBOPHLEBITIS
     Route: 058
     Dates: start: 201206, end: 201206

REACTIONS (3)
  - Haemorrhage [Not Recovered/Not Resolved]
  - Haematoma [Not Recovered/Not Resolved]
  - Pulmonary embolism [Fatal]
